FAERS Safety Report 16185868 (Version 2)
Quarter: 2019Q2

REPORT INFORMATION
  Report Type: Spontaneous
  Country: CH (occurrence: CH)
  Receive Date: 20190411
  Receipt Date: 20190411
  Transmission Date: 20190711
  Serious: Yes (Other)
  Sender: FDA-Public Use
  Company Number: PHHY2019CH079143

PATIENT
  Age: 64 Year
  Sex: Female

DRUGS (1)
  1. CYCLOSPORIN SANDOZ [Suspect]
     Active Substance: CYCLOSPORINE
     Indication: LIVER TRANSPLANT
     Route: 065

REACTIONS (2)
  - End stage renal disease [Unknown]
  - Essential thrombocythaemia [Unknown]

NARRATIVE: CASE EVENT DATE: 1994
